FAERS Safety Report 7605054-7 (Version None)
Quarter: 2011Q3

REPORT INFORMATION
  Report Type: 
  Country: None (occurrence: None)
  Receive Date: 20110713
  Receipt Date: 20081003
  Transmission Date: 20111222
  Serious: Yes (Other)
  Sender: FDA-Public Use
  Company Number: US-BAYER-200834713NA

PATIENT
  Age: 72 Year
  Sex: Female
  Weight: 91 kg

DRUGS (17)
  1. NITROGLYCERIN [Concomitant]
     Dosage: 0.4 MG, UNK
     Route: 060
  2. LASIX [Concomitant]
     Indication: FLUID RETENTION
     Dosage: 40 MG, UNK
     Route: 048
     Dates: start: 20060101, end: 20070101
  3. METOPROLOL TARTRATE [Concomitant]
     Dosage: 25 MG, UNK
     Route: 048
  4. TRASYLOL [Suspect]
     Indication: MITRAL VALVE REPAIR
     Dosage: 100  ML LOADING DOSE
     Route: 042
     Dates: start: 20070301, end: 20070301
  5. LASIX [Concomitant]
     Indication: RENAL FAILURE
  6. TRICOR [Concomitant]
     Dosage: 48 MG, UNK
     Route: 048
  7. HEPARIN [Concomitant]
     Dosage: UNK
     Route: 042
     Dates: start: 20070301
  8. TRASYLOL [Suspect]
     Dosage: 50 ML/HOUR INFUSION
     Route: 042
     Dates: start: 20070301, end: 20070301
  9. TOPROL-XL [Concomitant]
     Dosage: 50 MG, UNK
     Route: 048
  10. LEVOTHYROXINE SODIUM [Concomitant]
     Dosage: 100 MCG, UNK
     Route: 048
  11. ACCUPRIL [Concomitant]
     Indication: BLOOD PRESSURE FLUCTUATION
     Dosage: 20 MG, UNK
     Route: 048
     Dates: start: 20010101, end: 20070101
  12. TRASYLOL [Suspect]
     Indication: CORONARY ARTERY BYPASS
     Dosage: 1 ML, TEST DOSE
     Route: 042
     Dates: start: 20070301, end: 20070301
  13. LIPITOR [Concomitant]
     Dosage: 20 MG, UNK
     Route: 048
  14. VERSED [Concomitant]
     Dosage: UNK
     Route: 042
     Dates: start: 20070301
  15. PLAVIX [Concomitant]
     Dosage: 75 MG, UNK
     Route: 048
  16. CONTRAST MEDIA [Concomitant]
     Indication: CATHETERISATION CARDIAC
     Dosage: 96 ML, UNK
     Dates: start: 20070227
  17. RED BLOOD CELLS [Concomitant]

REACTIONS (11)
  - PAIN [None]
  - CARDIAC FAILURE CONGESTIVE [None]
  - STRESS [None]
  - RENAL FAILURE [None]
  - RESPIRATORY FAILURE [None]
  - UNEVALUABLE EVENT [None]
  - FEAR [None]
  - INJURY [None]
  - EMOTIONAL DISTRESS [None]
  - ANXIETY [None]
  - ANHEDONIA [None]
